FAERS Safety Report 7031409-8 (Version None)
Quarter: 2010Q4

REPORT INFORMATION
  Report Type: 
  Country: None (occurrence: None)
  Receive Date: 20101006
  Receipt Date: 20100924
  Transmission Date: 20110411
  Serious: Yes (Life-Threatening, Hospitalization, Other)
  Sender: FDA-Public Use
  Company Number: DE-WYE-H17824110

PATIENT
  Sex: Female

DRUGS (4)
  1. PANTOPRAZOLE SODIUM [Suspect]
     Dosage: 560 MG, OVERDOSE AMOUNT
     Route: 048
  2. SITAGLIPTIN [Suspect]
     Dosage: 2,45 G OVERDOSE AMOUNT
     Route: 048
  3. ETORICOXIB [Suspect]
     Dosage: 840 MG, OVERDOSE AMOUNT
     Route: 048
  4. METFORMIN [Suspect]
     Dosage: 49 G, OVERDOSE AMOUNT
     Route: 048

REACTIONS (7)
  - BLOOD PH DECREASED [None]
  - HYPOTHERMIA [None]
  - HYPOTONIA [None]
  - INTENTIONAL OVERDOSE [None]
  - SOMNOLENCE [None]
  - SUICIDE ATTEMPT [None]
  - TACHYCARDIA [None]
